FAERS Safety Report 19675720 (Version 1)
Quarter: 2021Q3

REPORT INFORMATION
  Report Type: Spontaneous
  Country: US (occurrence: US)
  Receive Date: 20210809
  Receipt Date: 20210809
  Transmission Date: 20211014
  Serious: Yes (Hospitalization, Other)
  Sender: FDA-Public Use
  Company Number: US-009507513-2108USA000978

PATIENT
  Age: 68 Year
  Sex: Female

DRUGS (2)
  1. KEYTRUDA [Suspect]
     Active Substance: PEMBROLIZUMAB
     Indication: METASTATIC SQUAMOUS CELL CARCINOMA
  2. KEYTRUDA [Suspect]
     Active Substance: PEMBROLIZUMAB
     Indication: BLADDER SQUAMOUS CELL CARCINOMA STAGE UNSPECIFIED
     Dosage: UNK, CYCLICAL, SHE COMPLETED SIX CYCLES

REACTIONS (2)
  - Immune-mediated enterocolitis [Unknown]
  - Off label use [Unknown]
